FAERS Safety Report 10409318 (Version 1)
Quarter: 2014Q3

REPORT INFORMATION
  Report Type: Spontaneous
  Country: US (occurrence: None)
  Receive Date: 20140825
  Receipt Date: 20140825
  Transmission Date: 20150326
  Serious: Yes (Disabling)
  Sender: FDA-Public Use
  Company Number: None

PATIENT
  Age: 54 Year
  Sex: Female
  Weight: 60.78 kg

DRUGS (2)
  1. AMPYRA [Suspect]
     Active Substance: DALFAMPRIDINE
     Indication: GAIT DISTURBANCE
     Dosage: 1 PILL TWICE DAILY TAKEN BY MOUTH
     Route: 048
     Dates: start: 20140725, end: 20140725
  2. AMPYRA [Suspect]
     Active Substance: DALFAMPRIDINE
     Indication: BALANCE DISORDER
     Dosage: 1 PILL TWICE DAILY TAKEN BY MOUTH
     Route: 048
     Dates: start: 20140725, end: 20140725

REACTIONS (5)
  - Disease recurrence [None]
  - Hypoaesthesia [None]
  - Walking aid user [None]
  - Middle insomnia [None]
  - Malaise [None]

NARRATIVE: CASE EVENT DATE: 20140726
